FAERS Safety Report 7680368-3 (Version None)
Quarter: 2011Q3

REPORT INFORMATION
  Report Type: 
  Country: None (occurrence: None)
  Receive Date: 20110812
  Receipt Date: 20110809
  Transmission Date: 20111222
  Serious: Yes (Other)
  Sender: FDA-Public Use
  Company Number: GB-GLAXOSMITHKLINE-B0738555A

PATIENT
  Sex: Male

DRUGS (2)
  1. REQUIP [Suspect]
     Indication: PARKINSON'S DISEASE
     Route: 048
  2. UNKNOWN [Concomitant]

REACTIONS (3)
  - BODY TEMPERATURE INCREASED [None]
  - NEUROLEPTIC MALIGNANT SYNDROME [None]
  - MUSCLE RIGIDITY [None]
